FAERS Safety Report 7904194-2 (Version None)
Quarter: 2011Q4

REPORT INFORMATION
  Report Type: 
  Country: None (occurrence: None)
  Receive Date: 20111109
  Receipt Date: 20111031
  Transmission Date: 20120403
  Serious: Yes (Hospitalization, Other)
  Sender: FDA-Public Use
  Company Number: US-BAYER-2011-004956

PATIENT
  Age: 43 Year
  Sex: Female

DRUGS (6)
  1. IBUPROFEN [Concomitant]
     Dosage: UNK
     Dates: start: 20080101, end: 20090101
  2. YAZ [Suspect]
  3. METOPROLOL [Concomitant]
     Indication: HYPERTENSION
  4. YAZ [Suspect]
     Indication: PREMENSTRUAL SYNDROME
     Dosage: UNK
     Dates: start: 20080101, end: 20090115
  5. METOPROLOL [Concomitant]
     Indication: MIGRAINE
  6. SYNTHROID [Concomitant]
     Indication: THYROID DISORDER

REACTIONS (5)
  - THROMBOPHLEBITIS SUPERFICIAL [None]
  - PAIN [None]
  - CHOLECYSTITIS [None]
  - CHOLECYSTECTOMY [None]
  - THROMBOSIS [None]
